FAERS Safety Report 5289674-3 (Version None)
Quarter: 2007Q2

REPORT INFORMATION
  Report Type: 
  Country: None (occurrence: None)
  Receive Date: 20070406
  Receipt Date: 20070326
  Transmission Date: 20071010
  Serious: Yes (Disabling)
  Sender: FDA-Public Use
  Company Number: FR-AVENTIS-200711069FR

PATIENT
  Age: 67 Year
  Sex: Female
  Weight: 70 kg

DRUGS (9)
  1. SPECIAFOLDINE [Suspect]
     Indication: ANAEMIA
     Route: 048
     Dates: end: 20070101
  2. LASILIX                            /00032601/ [Suspect]
     Indication: HYPERTENSION
     Route: 048
     Dates: end: 20070101
  3. CORDARONE [Suspect]
     Indication: ATRIAL FLUTTER
     Route: 048
     Dates: start: 20061215, end: 20070101
  4. CORDARONE [Suspect]
     Indication: ATRIAL FIBRILLATION
     Route: 048
     Dates: start: 20061215, end: 20070101
  5. LEVOTHYROXINE SODIUM [Suspect]
     Indication: HYPOTHYROIDISM
     Route: 048
     Dates: end: 20070101
  6. SINTROM [Suspect]
     Indication: ATRIAL FLUTTER
     Route: 048
     Dates: start: 20061215, end: 20070101
  7. SINTROM [Suspect]
     Indication: ATRIAL FIBRILLATION
     Route: 048
     Dates: start: 20061215, end: 20070101
  8. TARDYFERON                         /00023503/ [Suspect]
     Indication: ANAEMIA
     Route: 048
     Dates: end: 20070101
  9. RIVOTRIL [Concomitant]
     Route: 048
     Dates: end: 20070101

REACTIONS (3)
  - DRUG INTERACTION [None]
  - SUBARACHNOID HAEMORRHAGE [None]
  - SUBDURAL HAEMATOMA [None]
